FAERS Safety Report 7403946-5 (Version None)
Quarter: 2011Q2

REPORT INFORMATION
  Report Type: 
  Country: None (occurrence: None)
  Receive Date: 20110408
  Receipt Date: 20110330
  Transmission Date: 20111010
  Serious: Yes (Other)
  Sender: FDA-Public Use
  Company Number: US-ASTRAZENECA-2011SE18183

PATIENT
  Age: 56 Year
  Sex: Male
  Weight: 104.3 kg

DRUGS (8)
  1. SEROQUEL [Suspect]
     Indication: BIPOLAR DISORDER
     Route: 048
     Dates: start: 20080101
  2. VITAMIN B3 [Concomitant]
     Route: 048
  3. LISINOPRIL [Concomitant]
     Indication: HYPERTENSION
     Route: 048
  4. ASPIRIN [Concomitant]
     Indication: PROPHYLAXIS
     Route: 048
  5. BUPROPION XL [Concomitant]
     Route: 048
  6. TRAZODONE HCL [Concomitant]
     Route: 048
  7. DEPAKOTE [Concomitant]
     Route: 048
  8. VALPROEX [Concomitant]
     Route: 048

REACTIONS (4)
  - WEIGHT INCREASED [None]
  - JOINT INJURY [None]
  - LOWER LIMB FRACTURE [None]
  - FALL [None]
